FAERS Safety Report 5332242-5 (Version None)
Quarter: 2007Q1

REPORT INFORMATION
  Report Type: 
  Country: None (occurrence: None)
  Receive Date: 20070306
  Receipt Date: 20060503
  Transmission Date: 20070707
  Serious: Yes (Other)
  Sender: FDA-Public Use
  Company Number: A03200602845

PATIENT
  Age: 68 Year
  Sex: Male

DRUGS (1)
  1. PLAVIX [Suspect]
     Indication: PERIPHERAL ARTERIAL OCCLUSIVE DISEASE
     Dosage: ORAL
     Route: 048

REACTIONS (1)
  - ARTERIAL THROMBOSIS LIMB [None]
